FAERS Safety Report 14113916 (Version 1)
Quarter: 2017Q4

REPORT INFORMATION
  Report Type: Report from Study
  Country: BR (occurrence: BR)
  Receive Date: 20171023
  Receipt Date: 20171023
  Transmission Date: 20180321
  Serious: No
  Sender: FDA-Public Use
  Company Number: BR-JNJFOC-20171017459

PATIENT
  Sex: Female

DRUGS (4)
  1. STELARA [Suspect]
     Active Substance: USTEKINUMAB
     Indication: PSORIASIS
     Route: 058
     Dates: start: 20170406
  2. BENICAR [Concomitant]
     Active Substance: OLMESARTAN MEDOXOMIL
     Route: 065
  3. SIMVASTATIN. [Concomitant]
     Active Substance: SIMVASTATIN
     Route: 065
  4. AMARYL [Concomitant]
     Active Substance: GLIMEPIRIDE
     Route: 065

REACTIONS (7)
  - Hepatic steatosis [Unknown]
  - Psoriasis [Unknown]
  - Blood triglycerides increased [Unknown]
  - Abdominal pain upper [Unknown]
  - Blood cholesterol increased [Unknown]
  - Blood glucose increased [Unknown]
  - Abdominal distension [Unknown]
